FAERS Safety Report 17651646 (Version 1)
Quarter: 2020Q2

REPORT INFORMATION
  Report Type: Spontaneous
  Country: US (occurrence: US)
  Receive Date: 20200409
  Receipt Date: 20200409
  Transmission Date: 20200713
  Serious: Yes (Hospitalization)
  Sender: FDA-Public Use
  Company Number: None

PATIENT
  Sex: Female

DRUGS (8)
  1. BUSPIRONE [Concomitant]
     Active Substance: BUSPIRONE HYDROCHLORIDE
  2. CLONIDENE [Concomitant]
  3. SYNTHROID [Concomitant]
     Active Substance: LEVOTHYROXINE SODIUM
  4. ZALEPLON. [Concomitant]
     Active Substance: ZALEPLON
  5. TYLENOL [Concomitant]
     Active Substance: ACETAMINOPHEN
  6. HYDROXYCHLOR TAB [Concomitant]
  7. BENLYSTA [Suspect]
     Active Substance: BELIMUMAB
     Indication: SYSTEMIC LUPUS ERYTHEMATOSUS
     Dosage: ?          OTHER FREQUENCY:ONCE WEEKLY;?
     Route: 058
     Dates: start: 20181229
  8. IRBESARTAN. [Concomitant]
     Active Substance: IRBESARTAN

REACTIONS (1)
  - Therapy interrupted [None]
